FAERS Safety Report 16549334 (Version 2)
Quarter: 2019Q3

REPORT INFORMATION
  Report Type: Other
  Country: US (occurrence: US)
  Receive Date: 20190710
  Receipt Date: 20190929
  Transmission Date: 20191004
  Serious: Yes (Hospitalization, Other)
  Sender: FDA-Public Use
  Company Number: US-GLAND PHARMA LIMITED-2070584

PATIENT
  Age: 3 Month
  Sex: Male

DRUGS (4)
  1. ETOPOSIDE. [Suspect]
     Active Substance: ETOPOSIDE
  2. METHOTREXATE. [Suspect]
     Active Substance: METHOTREXATE
  3. VINCRISTINE SULFATE. [Suspect]
     Active Substance: VINCRISTINE SULFATE
  4. CISPLATIN. [Suspect]
     Active Substance: CISPLATIN
     Indication: PINEALOBLASTOMA

REACTIONS (5)
  - Pulmonary hypertension [Unknown]
  - Pulmonary veno-occlusive disease [Unknown]
  - Hypertension [Unknown]
  - Venoocclusive liver disease [Unknown]
  - Hepatic function abnormal [Unknown]
